FAERS Safety Report 15945683 (Version 3)
Quarter: 2019Q3

REPORT INFORMATION
  Report Type: Report from Study
  Country: None (occurrence: TR)
  Receive Date: 20190211
  Receipt Date: 20190708
  Transmission Date: 20191004
  Serious: Yes (Hospitalization, Other)
  Sender: FDA-Public Use
  Company Number: TR-ABBVIE-18S-161-2583583-00

PATIENT
  Age: 74 Year
  Sex: Female
  Weight: 45 kg

DRUGS (6)
  1. PARAFON [Concomitant]
     Active Substance: ACETAMINOPHEN\CHLORZOXAZONE
     Indication: PRODUCT USED FOR UNKNOWN INDICATION
     Route: 048
     Dates: start: 20170511
  2. PREGABALIN. [Concomitant]
     Active Substance: PREGABALIN
     Indication: PARKINSON^S DISEASE
     Route: 048
  3. COGITO [Concomitant]
     Indication: PARKINSON^S DISEASE
     Route: 048
     Dates: start: 20180330
  4. DUODOPA [Suspect]
     Active Substance: CARBIDOPA\LEVODOPA
     Indication: PARKINSON^S DISEASE
     Dosage: MORNING DOSE (ML): 3.60 CONTINUOUS DOSE (ML): 2.70 EXTRA DOSE (ML): 1.00
     Route: 050
     Dates: start: 20170511
  5. DOPALEVO [Concomitant]
     Indication: PARKINSON^S DISEASE
     Route: 048
     Dates: start: 20180622
  6. BUSCOPAN [Concomitant]
     Active Substance: BUTYLSCOPOLAMINE BROMIDE
     Indication: PRODUCT USED FOR UNKNOWN INDICATION
     Route: 048
     Dates: start: 20180622

REACTIONS (7)
  - Epistaxis [Recovered/Resolved]
  - Weight decreased [Not Recovered/Not Resolved]
  - Malnutrition [Not Recovered/Not Resolved]
  - Skin cancer [Not Recovered/Not Resolved]
  - Brain cancer metastatic [Not Recovered/Not Resolved]
  - Mouth haemorrhage [Recovered/Resolved]
  - Headache [Not Recovered/Not Resolved]

NARRATIVE: CASE EVENT DATE: 20181203
